FAERS Safety Report 10236121 (Version 1)
Quarter: 2014Q1

REPORT INFORMATION
  Report Type: Spontaneous
  Country: US (occurrence: None)
  Receive Date: 20140306
  Receipt Date: 20140306
  Transmission Date: 20141002
  Serious: Yes (Other)
  Sender: FDA-Public Use
  Company Number: 163-21880-13103345

PATIENT
  Age: 81 Year
  Sex: Female

DRUGS (13)
  1. REVLIMID (LENALIDOMIDE) (5 MILLIGRAM, CAPSULES) [Suspect]
     Indication: MANTLE CELL LYMPHOMA
     Route: 048
     Dates: start: 20131008
  2. ELIQUIS (APIXABAN) (UNKNOWN) [Concomitant]
     Dosage: UNK
  3. NEXIUM (ESOMEPRAZOLE) [Concomitant]
  4. SYNTHROID (LEVOTHYROXINE SODIUM) [Concomitant]
  5. TOPROL XL (METOPROLOL SUCCINATE) [Concomitant]
  6. LISINOPRIL (LISINOPRIL) [Concomitant]
  7. HYDROCODONE/APAP (VICODIN) [Concomitant]
  8. LIDODERM (LIDOCAINE) (POULTICE OR PATCH) [Concomitant]
  9. FUROSEMIDE (FUROSEMIDE) [Concomitant]
  10. BENADRYL (DIPHENHYDRAMINE) [Concomitant]
  11. CLOTRIMAZOLE AND BETAMETHASONE (CLOTRASON) (CREAM) [Concomitant]
  12. VELCADE (BORTEZOMIB) [Concomitant]
  13. BETAMETHASONE (BETAMETHASONE) [Concomitant]

REACTIONS (1)
  - Rectal haemorrhage [None]
